FAERS Safety Report 16684430 (Version 1)
Quarter: 2019Q3

REPORT INFORMATION
  Report Type: Spontaneous
  Country: GB (occurrence: GB)
  Receive Date: 20190808
  Receipt Date: 20190808
  Transmission Date: 20191004
  Serious: Yes (Death, Hospitalization)
  Sender: FDA-Public Use
  Company Number: GB-TEVA-2019-GB-1089422

PATIENT
  Age: 88 Year
  Sex: Female

DRUGS (15)
  1. E45 [Concomitant]
     Active Substance: LANOLIN\LIGHT MINERAL OIL\PARAFFIN
     Route: 061
  2. SODIUM CHLORIDE. [Concomitant]
     Active Substance: SODIUM CHLORIDE
     Route: 050
  3. CLOPIDOGREL [Suspect]
     Active Substance: CLOPIDOGREL BISULFATE
     Dosage: 75 MILLIGRAM DAILY;
     Route: 050
     Dates: end: 20190616
  4. BUPRENORPHINE. [Concomitant]
     Active Substance: BUPRENORPHINE
     Dosage: 1 PATCH WEEKLY WEDNESDAY. 5 MICROGRAMS/HOUR TRANSDERMAL PATCHES
     Route: 062
  5. SPATONE [Concomitant]
     Route: 050
  6. SANDO-K [Concomitant]
     Active Substance: POTASSIUM BICARBONATE\POTASSIUM CHLORIDE
     Route: 050
  7. HYOSCINE [Concomitant]
     Active Substance: SCOPOLAMINE
     Dosage: 1MG/72HOURS
     Route: 062
  8. BISACODYL. [Concomitant]
     Active Substance: BISACODYL
     Route: 054
  9. SALBUTAMOL [Concomitant]
     Active Substance: ALBUTEROL
     Dosage: 2.5MG/2.5ML. 4 TIMES DAILY.
     Route: 050
  10. FUROSEMIDE. [Concomitant]
     Active Substance: FUROSEMIDE
     Dosage: 20MG/5ML. UNCLEAR IF 20MG ONCE DAILY OR 40MG ONCE DAILY
     Route: 048
  11. LANSOPRAZOLE. [Concomitant]
     Active Substance: LANSOPRAZOLE
     Dosage: MORNING
     Route: 050
  12. MOVICOL [Concomitant]
     Active Substance: POLYETHYLENE GLYCOL 3350\POTASSIUM CHLORIDE\SODIUM BICARBONATE\SODIUM CHLORIDE
     Route: 050
  13. DOMPERIDONE [Concomitant]
     Active Substance: DOMPERIDONE
     Dosage: 1MG/ML
     Route: 048
  14. BISOPROLOL [Concomitant]
     Active Substance: BISOPROLOL
     Dosage: 1.25 MILLIGRAM DAILY;
     Route: 050
  15. PARACETAMOL [Concomitant]
     Active Substance: ACETAMINOPHEN
     Dosage: 1-2 FOUR TIMES DAILY
     Route: 050

REACTIONS (4)
  - Dyspnoea [Fatal]
  - Gastrointestinal haemorrhage [Fatal]
  - Respiratory rate increased [Fatal]
  - Acute kidney injury [Fatal]

NARRATIVE: CASE EVENT DATE: 20190616
